FAERS Safety Report 19672315 (Version 1)
Quarter: 2021Q3

REPORT INFORMATION
  Report Type: Spontaneous
  Country: US (occurrence: US)
  Receive Date: 20210808
  Receipt Date: 20210808
  Transmission Date: 20211014
  Serious: No
  Sender: FDA-Public Use
  Company Number: US-SA-2021SA260005

PATIENT
  Age: 71 Year
  Sex: Male

DRUGS (1)
  1. DUPIXENT [Suspect]
     Active Substance: DUPILUMAB
     Indication: DERMATITIS ATOPIC
     Dosage: 300 MG, QOW
     Route: 058
     Dates: start: 20210309

REACTIONS (1)
  - Rash [Not Recovered/Not Resolved]

NARRATIVE: CASE EVENT DATE: 202103
